FAERS Safety Report 12084259 (Version 1)
Quarter: 2016Q1

REPORT INFORMATION
  Report Type: Spontaneous
  Country: US (occurrence: None)
  Receive Date: 20160216
  Receipt Date: 20160216
  Transmission Date: 20160526
  Serious: Yes (Disabling)
  Sender: FDA-Public Use
  Company Number: None

PATIENT
  Age: 62 Year
  Sex: Female
  Weight: 72.58 kg

DRUGS (3)
  1. ESTRADIOL TRANSDERMAL SYSTEM [Concomitant]
     Active Substance: ESTRADIOL
  2. B-COMPLEX VITAMIN [Concomitant]
  3. ESTRACE [Suspect]
     Active Substance: ESTRADIOL
     Indication: VULVOVAGINAL DRYNESS
     Dosage: INSERT VAGINALLY TWICE WEEKLY VAGINAL
     Route: 067
     Dates: start: 20150209, end: 20150212

REACTIONS (7)
  - Vulvovaginal burning sensation [None]
  - Urinary tract infection [None]
  - Vitamin B12 decreased [None]
  - Dysuria [None]
  - Drug ineffective [None]
  - Asthenia [None]
  - Hypersensitivity [None]

NARRATIVE: CASE EVENT DATE: 20150209
